FAERS Safety Report 23791121 (Version 1)
Quarter: 2024Q2

REPORT INFORMATION
  Report Type: Spontaneous
  Country: GB (occurrence: GB)
  Receive Date: 20240428
  Receipt Date: 20240428
  Transmission Date: 20240715
  Serious: Yes (Other)
  Sender: FDA-Public Use
  Company Number: None

PATIENT
  Sex: Male
  Weight: 107 kg

DRUGS (11)
  1. APIXABAN [Suspect]
     Active Substance: APIXABAN
     Indication: Thrombosis
     Dosage: 2X10MG/DAY
  2. ALLOPURINOL [Concomitant]
     Active Substance: ALLOPURINOL
  3. BISOPROLOL [Concomitant]
     Active Substance: BISOPROLOL\BISOPROLOL FUMARATE
  4. FERROUS FUMARATE [Concomitant]
     Active Substance: FERROUS FUMARATE
  5. MAGNESIUM [Concomitant]
     Active Substance: MAGNESIUM
  6. OMEPRAZOLE [Concomitant]
     Active Substance: OMEPRAZOLE
  7. ACETAMINOPHEN [Concomitant]
     Active Substance: ACETAMINOPHEN
  8. SILDENAFIL [Concomitant]
     Active Substance: SILDENAFIL
  9. TELMISARTAN [Concomitant]
     Active Substance: TELMISARTAN
  10. EMTRICITABINE\TENOFOVIR DISOPROXIL [Concomitant]
     Active Substance: EMTRICITABINE\TENOFOVIR DISOPROXIL
  11. TESTOSTERONE [Concomitant]
     Active Substance: TESTOSTERONE

REACTIONS (1)
  - Skin exfoliation [Not Recovered/Not Resolved]
